FAERS Safety Report 13451893 (Version 1)
Quarter: 2017Q2

REPORT INFORMATION
  Report Type: Spontaneous
  Country: US (occurrence: US)
  Receive Date: 20170417
  Receipt Date: 20170417
  Transmission Date: 20170830
  Serious: Yes (Hospitalization)
  Sender: FDA-Public Use
  Company Number: None

PATIENT
  Age: 86 Year
  Sex: Male

DRUGS (1)
  1. ASPIRIN. [Suspect]
     Active Substance: ASPIRIN
     Indication: CEREBROVASCULAR ACCIDENT PROPHYLAXIS
     Route: 048
     Dates: start: 20131209, end: 20170404

REACTIONS (3)
  - Gastric haemorrhage [None]
  - Arteriovenous malformation [None]
  - Melaena [None]

NARRATIVE: CASE EVENT DATE: 20170404
